FAERS Safety Report 19304547 (Version 1)
Quarter: 2021Q2

REPORT INFORMATION
  Report Type: Other
  Country: DE (occurrence: DE)
  Receive Date: 20210526
  Receipt Date: 20210526
  Transmission Date: 20210717
  Serious: Yes (Other)
  Sender: FDA-Public Use
  Company Number: DE-MACLEODS PHARMA UK LTD-MAC2021031234

PATIENT

DRUGS (4)
  1. PROTHYRID [Concomitant]
     Active Substance: LEVOTHYROXINE SODIUM
     Indication: AUTOIMMUNE THYROIDITIS
     Dosage: UNK UNK, QD, FIRST TRIMESTER, 0?23.4 GESTATIONAL WEEK
     Route: 048
     Dates: start: 20200518, end: 20201030
  2. CLOPIDOGREL [Suspect]
     Active Substance: CLOPIDOGREL BISULFATE
     Indication: ATRIAL SEPTAL DEFECT
     Dosage: 75 MILLIGRAM, QD, FIRST TRIMESTER, 4.3?23.4 GESTATIONAL WEEK, START DATE: 18?JUN?2020
     Route: 048
     Dates: end: 20201030
  3. ASPIRIN. [Concomitant]
     Active Substance: ASPIRIN
     Indication: THROMBOSIS PROPHYLAXIS
     Dosage: 100 MILLIGRAM, QD, FIRST TRIMESTER, 0?23.4 GESTATIONAL WEEK
     Route: 048
     Dates: start: 20200518, end: 20201030
  4. DORMICUM [Concomitant]
     Indication: SURGERY
     Dosage: UNK, ONCE, FIRST TRIMESTER, 3?4 GESTATIONAL WEEK
     Route: 042

REACTIONS (2)
  - Foetal death [Recovered/Resolved]
  - Exposure during pregnancy [Unknown]
